FAERS Safety Report 6200596-3 (Version None)
Quarter: 2009Q2

REPORT INFORMATION
  Report Type: 
  Country: None (occurrence: None)
  Receive Date: 20090522
  Receipt Date: 20090512
  Transmission Date: 20091009
  Serious: Yes (Hospitalization)
  Sender: FDA-Public Use
  Company Number: US-AMGEN-QUU346804

PATIENT
  Sex: Male
  Weight: 2.6 kg

DRUGS (6)
  1. ENBREL [Suspect]
     Indication: RHEUMATOID ARTHRITIS
     Route: 064
     Dates: start: 20041101, end: 20050101
  2. METHOTREXATE [Concomitant]
     Route: 064
     Dates: end: 20070101
  3. REMICADE [Concomitant]
     Route: 064
     Dates: end: 20070301
  4. PREDNISONE [Concomitant]
     Route: 064
  5. LOVENOX [Concomitant]
     Route: 064
  6. VITAMIN TAB [Concomitant]
     Route: 064

REACTIONS (3)
  - NEONATAL RESPIRATORY DISTRESS SYNDROME [None]
  - PREMATURE BABY [None]
  - WEIGHT DECREASE NEONATAL [None]
